FAERS Safety Report 12637447 (Version 1)
Quarter: 2016Q3

REPORT INFORMATION
  Report Type: Spontaneous
  Country: US (occurrence: US)
  Receive Date: 20160809
  Receipt Date: 20160809
  Transmission Date: 20161109
  Serious: No
  Sender: FDA-Public Use
  Company Number: US-BEH-2016062385

PATIENT
  Sex: Female
  Weight: 71 kg

DRUGS (19)
  1. ZOFRAN ODT [Concomitant]
     Active Substance: ONDANSETRON HYDROCHLORIDE
  2. DIPHENHYDRAMINE. [Concomitant]
     Active Substance: DIPHENHYDRAMINE
  3. KEPPRA [Concomitant]
     Active Substance: LEVETIRACETAM
  4. CELLCEPT [Concomitant]
     Active Substance: MYCOPHENOLATE MOFETIL\MYCOPHENOLATE MOFETIL HYDROCHLORIDE
  5. CALCIUM+VITAMIN D [Concomitant]
     Active Substance: CALCIUM\VITAMIN D
  6. DESIPRAMINE [Concomitant]
     Active Substance: DESIPRAMINE
  7. MULTIVITAMINS [Concomitant]
     Active Substance: VITAMINS
  8. ACETAMINOPHEN. [Concomitant]
     Active Substance: ACETAMINOPHEN
  9. MESTINON [Concomitant]
     Active Substance: PYRIDOSTIGMINE BROMIDE
  10. NEURONTIN [Concomitant]
     Active Substance: GABAPENTIN
  11. SODIUM CHLORIDE. [Concomitant]
     Active Substance: SODIUM CHLORIDE
  12. HEPARIN [Concomitant]
     Active Substance: HEPARIN SODIUM
  13. L-M-X [Concomitant]
  14. DEPAKOTE [Concomitant]
     Active Substance: DIVALPROEX SODIUM
  15. PRIVIGEN [Suspect]
     Active Substance: HUMAN IMMUNOGLOBULIN G
     Indication: MYASTHENIA GRAVIS
     Route: 042
  16. AMOXICILLIN. [Concomitant]
     Active Substance: AMOXICILLIN
  17. EPIPEN [Concomitant]
     Active Substance: EPINEPHRINE
  18. REFRESH P.M. [Concomitant]
     Active Substance: MINERAL OIL\PETROLATUM
  19. LIPITOR [Concomitant]
     Active Substance: ATORVASTATIN CALCIUM

REACTIONS (1)
  - Pharyngitis [Unknown]
